FAERS Safety Report 20821758 (Version 1)
Quarter: 2022Q2

REPORT INFORMATION
  Report Type: Spontaneous
  Country: US (occurrence: US)
  Receive Date: 20220512
  Receipt Date: 20220512
  Transmission Date: 20220720
  Serious: No
  Sender: FDA-Public Use
  Company Number: US-PFIZER INC-2020179489

PATIENT
  Age: 73 Year
  Sex: Female
  Weight: 87.982 kg

DRUGS (2)
  1. XELJANZ XR [Suspect]
     Active Substance: TOFACITINIB CITRATE
     Indication: Pain in extremity
     Dosage: 11 MG, 1X/DAY
     Route: 048
  2. XELJANZ XR [Suspect]
     Active Substance: TOFACITINIB CITRATE
     Indication: Arthralgia

REACTIONS (6)
  - Product dose omission issue [Unknown]
  - Walking disability [Unknown]
  - Peripheral swelling [Unknown]
  - Joint swelling [Unknown]
  - Condition aggravated [Unknown]
  - Feeling abnormal [Unknown]
